FAERS Safety Report 9383662 (Version 2)
Quarter: 2013Q3

REPORT INFORMATION
  Report Type: Report from Study
  Country: DE (occurrence: DE)
  Receive Date: 20130704
  Receipt Date: 20130709
  Transmission Date: 20140515
  Serious: Yes (Death, Hospitalization)
  Sender: FDA-Public Use
  Company Number: DE-AMGEN-DEUCT2013041967

PATIENT
  Age: 70 Year
  Sex: Female
  Weight: 77 kg

DRUGS (3)
  1. PANITUMUMAB [Suspect]
     Indication: OVARIAN CANCER
     Dosage: 6 MG/KG, UNK
     Route: 042
     Dates: start: 20130513, end: 20130513
  2. PEGYLATED LIPOSOMAL DOXORUBICIN HYDROCHLORIDE [Concomitant]
     Indication: OVARIAN CANCER
     Dosage: 30 MG/M2, UNK
     Route: 042
     Dates: start: 20130513, end: 20130513
  3. CARBOPLATIN [Concomitant]
     Indication: OVARIAN CANCER
     Dosage: UNK
     Route: 042
     Dates: start: 20130513, end: 20130513

REACTIONS (1)
  - General physical health deterioration [Fatal]
